FAERS Safety Report 17854619 (Version 2)
Quarter: 2020Q2

REPORT INFORMATION
  Report Type: Spontaneous
  Country: CN (occurrence: CN)
  Receive Date: 20200603
  Receipt Date: 20200605
  Transmission Date: 20200714
  Serious: No
  Sender: FDA-Public Use
  Company Number: CN-009507513-2006CHN000330

PATIENT
  Age: 1 Year
  Sex: Female

DRUGS (3)
  1. MONTELUKAST SODIUM. [Suspect]
     Active Substance: MONTELUKAST SODIUM
     Indication: ALLERGIC COUGH
     Dosage: UNK
     Route: 048
     Dates: start: 2019
  2. PROCATEROL HYDROCHLORIDE [Suspect]
     Active Substance: PROCATEROL HYDROCHLORIDE
     Indication: ALLERGIC COUGH
     Dosage: UNK UNK,
     Route: 048
     Dates: start: 2019
  3. FLUTICASONE PROPIONATE. [Suspect]
     Active Substance: FLUTICASONE PROPIONATE
     Indication: ALLERGIC COUGH
     Dosage: UNK, BID INHALATION AEROSOL
     Dates: start: 2019

REACTIONS (6)
  - Drug ineffective [Unknown]
  - Nasopharyngitis [Unknown]
  - Adverse event [Unknown]
  - Pyrexia [Recovered/Resolved]
  - Product administration error [Unknown]
  - Intentional underdose [Unknown]

NARRATIVE: CASE EVENT DATE: 2019
